FAERS Safety Report 7332615-5 (Version None)
Quarter: 2011Q1

REPORT INFORMATION
  Report Type: 
  Country: None (occurrence: None)
  Receive Date: 20110304
  Receipt Date: 20110302
  Transmission Date: 20110831
  Serious: Yes (Other)
  Sender: FDA-Public Use
  Company Number: JP-PFIZER INC-2011038908

PATIENT
  Age: 55 Year
  Sex: Female

DRUGS (1)
  1. CABERGOLINE [Suspect]
     Indication: PARKINSON'S DISEASE
     Dosage: 3MG DAILY
     Route: 048

REACTIONS (1)
  - DYSTONIA [None]
